FAERS Safety Report 18811751 (Version 3)
Quarter: 2021Q1

REPORT INFORMATION
  Report Type: Report from Study
  Country: US (occurrence: US)
  Receive Date: 20210129
  Receipt Date: 20210322
  Transmission Date: 20210419
  Serious: No
  Sender: FDA-Public Use
  Company Number: NVSC2021US015227

PATIENT
  Sex: Male

DRUGS (1)
  1. COSENTYX [Suspect]
     Active Substance: SECUKINUMAB
     Indication: PSORIATIC ARTHROPATHY
     Dosage: 150 MG( EVERY WEEK X 5 WEEKS, THEN EVERY 4 WEEKS)
     Route: 058
     Dates: start: 20210101

REACTIONS (4)
  - Chest pain [Unknown]
  - Feeling hot [Unknown]
  - Abdominal pain upper [Unknown]
  - Swelling face [Unknown]
